FAERS Safety Report 13358964 (Version 1)
Quarter: 2017Q1

REPORT INFORMATION
  Report Type: Spontaneous
  Country: US (occurrence: US)
  Receive Date: 20170322
  Receipt Date: 20170322
  Transmission Date: 20170429
  Serious: No
  Sender: FDA-Public Use
  Company Number: US-MAINPOINTE_PHARMACEUTICALS_LLC-USA-POI0580201700082

PATIENT
  Sex: Female

DRUGS (2)
  1. SLO-NIACIN [Suspect]
     Active Substance: DIETARY SUPPLEMENT
     Indication: BLOOD CHOLESTEROL INCREASED
     Dosage: QD AT BEDTIME
     Route: 048
  2. SLO-NIACIN [Suspect]
     Active Substance: DIETARY SUPPLEMENT
     Indication: BLOOD TRIGLYCERIDES INCREASED

REACTIONS (4)
  - Middle insomnia [None]
  - Flushing [Unknown]
  - Overdose [Unknown]
  - Drug dose omission [None]

NARRATIVE: CASE EVENT DATE: 2017
